FAERS Safety Report 6932418-7 (Version None)
Quarter: 2010Q3

REPORT INFORMATION
  Report Type: 
  Country: None (occurrence: None)
  Receive Date: 20100817
  Receipt Date: 20100806
  Transmission Date: 20110219
  Serious: Yes (Death)
  Sender: FDA-Public Use
  Company Number: OPIR20100025

PATIENT
  Age: 28 Year
  Sex: Male
  Weight: 95.2554 kg

DRUGS (5)
  1. OPANA [Suspect]
     Indication: PRODUCT USED FOR UNKNOWN INDICATION
  2. OXYCODONE (OXYCODONE) (UNKNOWN) [Suspect]
     Indication: PRODUCT USED FOR UNKNOWN INDICATION
  3. DIAZEPAM [Suspect]
     Indication: PRODUCT USED FOR UNKNOWN INDICATION
  4. NORDIAZEPAM (NORDIAZEPAM) (UNKNOWN) [Suspect]
     Indication: PRODUCT USED FOR UNKNOWN INDICATION
  5. ALCOHOL (ETHANOL) (UNKNOWN) [Suspect]
     Indication: PRODUCT USED FOR UNKNOWN INDICATION

REACTIONS (8)
  - ACUTE PULMONARY OEDEMA [None]
  - BRAIN OEDEMA [None]
  - CARDIOMEGALY [None]
  - DRUG INTERACTION [None]
  - DRUG TOXICITY [None]
  - HEPATIC STEATOSIS [None]
  - PANCREATIC HAEMORRHAGE [None]
  - VISCERAL CONGESTION [None]
